FAERS Safety Report 16353354 (Version 1)
Quarter: 2019Q2

REPORT INFORMATION
  Report Type: Spontaneous
  Country: CA (occurrence: CA)
  Receive Date: 20190524
  Receipt Date: 20190524
  Transmission Date: 20190711
  Serious: Yes (Other)
  Sender: FDA-Public Use
  Company Number: CA-TEVA-2019-CA-1052256

PATIENT
  Sex: Female

DRUGS (1)
  1. TAMOXIFEN 20MG [Suspect]
     Active Substance: TAMOXIFEN
     Route: 065
     Dates: start: 20180305, end: 20190208

REACTIONS (1)
  - Disease progression [Unknown]
